FAERS Safety Report 5881820-3 (Version None)
Quarter: 2008Q3

REPORT INFORMATION
  Report Type: 
  Country: None (occurrence: None)
  Receive Date: 20080912
  Receipt Date: 20080811
  Transmission Date: 20090109
  Serious: No
  Sender: FDA-Public Use
  Company Number: US-ABBOTT-08P-163-0463218-00

PATIENT
  Sex: Male

DRUGS (4)
  1. HUMIRA [Suspect]
     Indication: RHEUMATOID ARTHRITIS
     Route: 058
     Dates: start: 20050101
  2. HUMIRA [Suspect]
     Indication: RHEUMATOID ARTHRITIS
     Route: 058
  3. LISINOPRIL [Concomitant]
     Indication: CARDIOMEGALY
     Route: 048
  4. LISINOPRIL [Concomitant]
     Indication: HYPERTENSION

REACTIONS (5)
  - ACCIDENTAL EXPOSURE [None]
  - FATIGUE [None]
  - INJECTION SITE HAEMORRHAGE [None]
  - JOINT SPRAIN [None]
  - SYNOVIAL CYST [None]
